FAERS Safety Report 7685626-4 (Version None)
Quarter: 2011Q3

REPORT INFORMATION
  Report Type: 
  Country: None (occurrence: None)
  Receive Date: 20110816
  Receipt Date: 20110805
  Transmission Date: 20111222
  Serious: Yes (Hospitalization)
  Sender: FDA-Public Use
  Company Number: PHHY2011FR71188

PATIENT
  Age: 17 Year
  Sex: Female

DRUGS (2)
  1. LOPERAMIDE HCL [Suspect]
     Dosage: UNK UKN, UNK
     Route: 065
  2. TRIMEBUTINE [Suspect]
     Dosage: UNK UKN, UNK
     Route: 065

REACTIONS (3)
  - PANCREATIC ENZYMES INCREASED [None]
  - OVERDOSE [None]
  - ABDOMINAL PAIN UPPER [None]
